FAERS Safety Report 7495894-X (Version None)
Quarter: 2011Q2

REPORT INFORMATION
  Report Type: 
  Country: None (occurrence: None)
  Receive Date: 20110523
  Receipt Date: 20110517
  Transmission Date: 20111010
  Serious: Yes (Other)
  Sender: FDA-Public Use
  Company Number: BR-ABBOTT-11P-020-0726696-00

PATIENT
  Sex: Female

DRUGS (2)
  1. UNKNOWN CHEMOTHERAPY [Suspect]
     Indication: LUNG NEOPLASM MALIGNANT
  2. SYNTHROID [Suspect]
     Indication: HYPOTHYROIDISM
     Route: 048

REACTIONS (2)
  - LUNG NEOPLASM MALIGNANT [None]
  - PAIN [None]
